FAERS Safety Report 6083881-8 (Version None)
Quarter: 2009Q1

REPORT INFORMATION
  Report Type: 
  Country: None (occurrence: None)
  Receive Date: 20090219
  Receipt Date: 20090210
  Transmission Date: 20090719
  Serious: Yes (Hospitalization, Other)
  Sender: FDA-Public Use
  Company Number: DE-BAXTER-2008BH011455

PATIENT
  Age: 14 Year
  Sex: Male
  Weight: 60 kg

DRUGS (6)
  1. GAMMAGARD LIQUID [Suspect]
     Indication: BONE MARROW TRANSPLANT
     Route: 065
     Dates: start: 20081022, end: 20081022
  2. GAMMAGARD LIQUID [Suspect]
     Indication: SEPSIS
     Route: 065
     Dates: start: 20081022, end: 20081022
  3. TEICOPLANIN [Concomitant]
     Indication: SEPSIS
     Route: 042
     Dates: start: 20081020, end: 20081027
  4. MEROPENEM [Concomitant]
     Indication: SEPSIS
     Route: 042
     Dates: start: 20081022, end: 20081109
  5. VERGENTAN [Concomitant]
     Indication: NAUSEA
     Route: 065
     Dates: start: 20081019, end: 20081023
  6. ZOFRAN [Concomitant]
     Indication: NAUSEA
     Route: 065
     Dates: start: 20081013, end: 20081024

REACTIONS (6)
  - BLOOD PRESSURE INCREASED [None]
  - CHILLS [None]
  - GENERAL PHYSICAL HEALTH DETERIORATION [None]
  - NAUSEA [None]
  - TACHYCARDIA [None]
  - URTICARIA [None]
